FAERS Safety Report 25552822 (Version 2)
Quarter: 2025Q4

REPORT INFORMATION
  Report Type: Spontaneous
  Country: US (occurrence: None)
  Receive Date: 20250715
  Receipt Date: 20251204
  Transmission Date: 20260118
  Serious: Yes (Hospitalization)
  Sender: UCB
  Company Number: US-UCBSA-2025042652

PATIENT
  Age: 43 Year

DRUGS (2)
  1. BIMZELX [Suspect]
     Active Substance: BIMEKIZUMAB-BKZX
     Indication: Hidradenitis
     Dosage: 320 MILLIGRAM, EV 2 WEEKS(QOW)
  2. BIMZELX [Suspect]
     Active Substance: BIMEKIZUMAB-BKZX
     Dosage: 320 MILLIGRAM, EV 4 WEEKS

REACTIONS (2)
  - Urinary tract infection [Unknown]
  - Blood potassium abnormal [Unknown]
